FAERS Safety Report 15910164 (Version 1)
Quarter: 2019Q1

REPORT INFORMATION
  Report Type: Spontaneous
  Country: US (occurrence: US)
  Receive Date: 20190204
  Receipt Date: 20190204
  Transmission Date: 20190417
  Serious: No
  Sender: FDA-Public Use
  Company Number: US-ABBVIE-18K-163-2359621-00

PATIENT
  Age: 13 Year
  Sex: Female
  Weight: 58.1 kg

DRUGS (2)
  1. HUMIRA [Suspect]
     Active Substance: ADALIMUMAB
     Indication: COLITIS ULCERATIVE
     Route: 058
     Dates: start: 20170822, end: 20180330
  2. HUMIRA [Suspect]
     Active Substance: ADALIMUMAB
     Route: 058
     Dates: start: 20180401

REACTIONS (6)
  - Injection site papule [Not Recovered/Not Resolved]
  - Dermatitis [Not Recovered/Not Resolved]
  - Blood immunoglobulin E decreased [Unknown]
  - Dyshidrotic eczema [Unknown]
  - Abdominal pain [Recovered/Resolved]
  - Urticaria [Unknown]

NARRATIVE: CASE EVENT DATE: 201803
